FAERS Safety Report 4417209-3 (Version None)
Quarter: 2004Q3

REPORT INFORMATION
  Report Type: 
  Country: None (occurrence: None)
  Receive Date: 20040806
  Receipt Date: 20030617
  Transmission Date: 20050211
  Serious: Yes (Disabling)
  Sender: FDA-Public Use
  Company Number: US-ROCHE-340490

PATIENT
  Age: 54 Year
  Sex: Female
  Weight: 64.4 kg

DRUGS (2)
  1. PEGASYS [Suspect]
     Route: 058
     Dates: start: 20030310, end: 20030528
  2. COPEGUS [Suspect]
     Dosage: DOSAGE REGIMEN REPORTED AS 3 AM AND 3 PM.
     Route: 048
     Dates: start: 20030310, end: 20030528

REACTIONS (3)
  - HEADACHE [None]
  - KERATITIS [None]
  - MIGRAINE [None]
